FAERS Safety Report 18396820 (Version 2)
Quarter: 2020Q4

REPORT INFORMATION
  Report Type: Spontaneous
  Country: US (occurrence: US)
  Receive Date: 20201019
  Receipt Date: 20201104
  Transmission Date: 20210114
  Serious: No
  Sender: FDA-Public Use
  Company Number: US-GLAXOSMITHKLINE-US2020203885

PATIENT
  Age: 89 Year
  Sex: Male

DRUGS (2)
  1. ANORO ELLIPTA [Suspect]
     Active Substance: UMECLIDINIUM BROMIDE\VILANTEROL TRIFENATATE
     Indication: PRODUCT USED FOR UNKNOWN INDICATION
     Dosage: UNK
     Dates: end: 202010
  2. VENTOLIN HFA [Suspect]
     Active Substance: ALBUTEROL SULFATE
     Indication: PRODUCT USED FOR UNKNOWN INDICATION
     Dosage: UNK (AS REQUIRED)

REACTIONS (9)
  - Oral discomfort [Recovering/Resolving]
  - Wrong technique in product usage process [Unknown]
  - Secretion discharge [Unknown]
  - Cough [Unknown]
  - Glossodynia [Recovering/Resolving]
  - Tongue discolouration [Unknown]
  - Skin discolouration [Unknown]
  - Gingival discolouration [Unknown]
  - Candida infection [Recovering/Resolving]

NARRATIVE: CASE EVENT DATE: 202008
